FAERS Safety Report 6370682-6 (Version None)
Quarter: 2009Q3

REPORT INFORMATION
  Report Type: 
  Country: None (occurrence: None)
  Receive Date: 20090923
  Receipt Date: 20070608
  Transmission Date: 20100115
  Serious: No
  Sender: FDA-Public Use
  Company Number: US-ASTRAZENECA-2006UW25416

PATIENT
  Age: 451 Month
  Sex: Male
  Weight: 93 kg

DRUGS (29)
  1. SEROQUEL [Suspect]
     Indication: MENTAL DISORDER
     Route: 048
     Dates: start: 20010601, end: 20030101
  2. SEROQUEL [Suspect]
     Indication: PARANOIA
     Route: 048
     Dates: start: 20010601, end: 20030101
  3. SEROQUEL [Suspect]
     Indication: AGITATION
     Route: 048
     Dates: start: 20010601, end: 20030101
  4. SEROQUEL [Suspect]
     Indication: IRRITABILITY
     Route: 048
     Dates: start: 20010601, end: 20030101
  5. SEROQUEL [Suspect]
     Indication: ANXIETY
     Route: 048
     Dates: start: 20010601, end: 20030101
  6. SEROQUEL [Suspect]
     Dosage: 25-500 MG
     Route: 048
     Dates: start: 20030321, end: 20050920
  7. SEROQUEL [Suspect]
     Dosage: 25-500 MG
     Route: 048
     Dates: start: 20030321, end: 20050920
  8. SEROQUEL [Suspect]
     Dosage: 25-500 MG
     Route: 048
     Dates: start: 20030321, end: 20050920
  9. SEROQUEL [Suspect]
     Dosage: 25-500 MG
     Route: 048
     Dates: start: 20030321, end: 20050920
  10. SEROQUEL [Suspect]
     Dosage: 25-500 MG
     Route: 048
     Dates: start: 20030321, end: 20050920
  11. RISPERDAL [Suspect]
     Dates: start: 20030101
  12. RISPERDAL [Suspect]
     Dosage: 0.5 - 16 MG
     Dates: start: 20030521, end: 20070126
  13. ZYPREXA [Suspect]
     Dates: start: 20010101
  14. ZYPREXA [Suspect]
  15. GEODON [Concomitant]
     Dates: start: 20030101, end: 20070101
  16. GEODON [Concomitant]
     Dates: start: 20030219
  17. HALDOL [Concomitant]
     Indication: ANXIETY
     Dates: start: 20060101
  18. HALDOL [Concomitant]
     Indication: AGITATION
     Dates: start: 20060101
  19. HALDOL [Concomitant]
     Dates: start: 20060731
  20. HALDOL [Concomitant]
     Dates: start: 20060731
  21. CYMBALTA [Concomitant]
     Dates: start: 20060101
  22. ABILIFY [Concomitant]
     Dosage: 15 - 20 MG
     Dates: start: 20030219
  23. ABILIFY [Concomitant]
     Dates: start: 20060101
  24. TYLENOL (CAPLET) [Concomitant]
     Indication: PAIN
     Dosage: 650 -2600 MG
     Route: 048
     Dates: start: 19961102
  25. PROZAC [Concomitant]
     Indication: ANXIETY
     Dosage: 20-80 MG
     Route: 048
     Dates: start: 20040406
  26. AMBIEN [Concomitant]
     Indication: INSOMNIA
     Dosage: 5 -10 MG
     Dates: start: 20040416
  27. METFORMIN HCL [Concomitant]
     Indication: DIABETES MELLITUS
     Dosage: 500 -2500 MG
     Route: 048
     Dates: start: 20030627
  28. DIAZEPAM [Concomitant]
     Indication: ANXIETY
     Dosage: 5- 30 MG
     Route: 048
     Dates: start: 20041207
  29. DEPAKOTE [Concomitant]
     Indication: ANXIETY
     Dosage: 500-1500 MG
     Route: 048
     Dates: start: 20040529

REACTIONS (3)
  - DIABETES MELLITUS [None]
  - OBSESSIVE-COMPULSIVE DISORDER [None]
  - TYPE 2 DIABETES MELLITUS [None]
